FAERS Safety Report 12214995 (Version 3)
Quarter: 2016Q4

REPORT INFORMATION
  Report Type: Report from Study
  Country: AU (occurrence: AU)
  Receive Date: 20160328
  Receipt Date: 20161213
  Transmission Date: 20170207
  Serious: Yes (Hospitalization, Other)
  Sender: FDA-Public Use
  Company Number: AU-REGENERON PHARMACEUTICALS, INC.-2016-14450

PATIENT

DRUGS (2)
  1. EYLEA [Suspect]
     Active Substance: AFLIBERCEPT
     Indication: NEOVASCULAR AGE-RELATED MACULAR DEGENERATION
     Dosage: 2 MG MILLIGRAM(S), MONTHLY
     Route: 031
     Dates: start: 20150614
  2. EYLEA [Suspect]
     Active Substance: AFLIBERCEPT
     Dosage: 2 MG, Q6WK
     Route: 031
     Dates: start: 20161123, end: 20161123

REACTIONS (9)
  - Device dislocation [Unknown]
  - Visual impairment [Recovered/Resolved]
  - Respiratory failure [Recovering/Resolving]
  - Intra-ocular injection [Unknown]
  - Glaucoma [Unknown]
  - Intraocular pressure fluctuation [Unknown]
  - Intra-ocular injection [Unknown]
  - Cardiac fibrillation [Unknown]
  - Product use issue [Unknown]

NARRATIVE: CASE EVENT DATE: 201506
